FAERS Safety Report 6243601-0 (Version None)
Quarter: 2009Q2

REPORT INFORMATION
  Report Type: 
  Country: None (occurrence: None)
  Receive Date: 20090624
  Receipt Date: 20090617
  Transmission Date: 20091009
  Serious: Yes (Hospitalization)
  Sender: FDA-Public Use
  Company Number: CA-TEVA-186178USA

PATIENT
  Age: 37 Year
  Sex: Male

DRUGS (4)
  1. NAPROXEN 250 MG, 375 MG + 500 MG TABLETS [Suspect]
  2. LORAZEPAM [Suspect]
  3. BACLOFEN [Suspect]
  4. OXAZEPAM [Suspect]

REACTIONS (3)
  - BLOOD BILIRUBIN INCREASED [None]
  - INTENTIONAL OVERDOSE [None]
  - LABORATORY TEST INTERFERENCE [None]
